FAERS Safety Report 9198484 (Version 1)
Quarter: 2013Q1

REPORT INFORMATION
  Report Type: Spontaneous
  Country: MX (occurrence: MX)
  Receive Date: 20130329
  Receipt Date: 20130329
  Transmission Date: 20140127
  Serious: Yes (Hospitalization)
  Sender: FDA-Public Use
  Company Number: PHHY2013MX029885

PATIENT
  Age: 85 Year
  Sex: Male

DRUGS (3)
  1. ZOMETA [Suspect]
     Indication: NUTRITIONAL SUPPLEMENTATION
     Dosage: 4 MG, EVERY 2 MONTHS
     Route: 042
     Dates: start: 201008
  2. ZOMETA [Suspect]
     Indication: PROSTATE CANCER
  3. CASODEX [Concomitant]
     Indication: DYSURIA
     Dosage: 1 UKN, DAILY
     Dates: start: 201212

REACTIONS (3)
  - Hip fracture [Not Recovered/Not Resolved]
  - Movement disorder [Not Recovered/Not Resolved]
  - Pain [Not Recovered/Not Resolved]
